FAERS Safety Report 6038615-X (Version None)
Quarter: 2009Q1

REPORT INFORMATION
  Report Type: 
  Country: None (occurrence: None)
  Receive Date: 20090114
  Receipt Date: 20090114
  Transmission Date: 20090719
  Serious: Yes (Other)
  Sender: FDA-Public Use
  Company Number: None

PATIENT
  Sex: Female
  Weight: 56.246 kg

DRUGS (1)
  1. IMITREX [Suspect]
     Indication: MIGRAINE
     Dosage: 6MG 1 TIME 057/SQ
     Route: 058
     Dates: start: 20081211

REACTIONS (7)
  - ANXIETY [None]
  - BURNING SENSATION [None]
  - DYSPNOEA [None]
  - ERYTHEMA [None]
  - INJECTION SITE PAIN [None]
  - SWELLING [None]
  - WHEEZING [None]
